FAERS Safety Report 17348402 (Version 1)
Quarter: 2020Q1

REPORT INFORMATION
  Report Type: Spontaneous
  Country: US (occurrence: US)
  Receive Date: 20200115
  Receipt Date: 20200115
  Transmission Date: 20200409
  Serious: Yes (Life-Threatening, Hospitalization)
  Sender: FDA-Public Use
  Company Number: None

PATIENT
  Age: 16 Year
  Sex: Female

DRUGS (1)
  1. BACTRIM [Suspect]
     Active Substance: SULFAMETHOXAZOLE\TRIMETHOPRIM
     Indication: ACNE
     Route: 048
     Dates: start: 20150818, end: 20150910

REACTIONS (6)
  - Acute lung injury [None]
  - Pulmonary interstitial emphysema syndrome [None]
  - Acute respiratory failure [None]
  - Lung opacity [None]
  - Pneumomediastinum [None]
  - Interstitial lung disease [None]
